FAERS Safety Report 11238181 (Version 1)
Quarter: 2015Q3

REPORT INFORMATION
  Report Type: Spontaneous
  Country: US (occurrence: US)
  Receive Date: 20150703
  Receipt Date: 20150703
  Transmission Date: 20151125
  Serious: Yes (Other)
  Sender: FDA-Public Use
  Company Number: US-GLAXOSMITHKLINE-US2015GSK095576

PATIENT
  Age: 51 Year
  Sex: Female

DRUGS (8)
  1. LISINOPRIL. [Suspect]
     Active Substance: LISINOPRIL
  2. PHENERGAN [Suspect]
     Active Substance: PROMETHAZINE HYDROCHLORIDE
  3. TRAMADOL. [Suspect]
     Active Substance: TRAMADOL
  4. DILAUDID [Suspect]
     Active Substance: HYDROMORPHONE HYDROCHLORIDE
  5. FENTANYL. [Suspect]
     Active Substance: FENTANYL
  6. REGLAN [Suspect]
     Active Substance: METOCLOPRAMIDE HYDROCHLORIDE
  7. ZOFRAN [Suspect]
     Active Substance: ONDANSETRON HYDROCHLORIDE
  8. FLUOXETINE [Suspect]
     Active Substance: FLUOXETINE\FLUOXETINE HYDROCHLORIDE

REACTIONS (7)
  - Serotonin syndrome [Recovered/Resolved]
  - Drug interaction [Unknown]
  - Tachycardia [Unknown]
  - Pyrexia [Unknown]
  - Unresponsive to stimuli [Unknown]
  - Seizure like phenomena [Unknown]
  - Myoclonus [Unknown]
